FAERS Safety Report 21800558 (Version 1)
Quarter: 2022Q4

REPORT INFORMATION
  Report Type: Spontaneous
  Country: US (occurrence: None)
  Receive Date: 20221229
  Receipt Date: 20221229
  Transmission Date: 20230113
  Serious: Yes (Death)
  Sender: FDA-Public Use
  Company Number: None

PATIENT
  Age: 78 Year
  Sex: Female
  Weight: 60.78 kg

DRUGS (1)
  1. MAGNESIUM CITRATE [Suspect]
     Active Substance: MAGNESIUM CITRATE
     Indication: Constipation
     Dosage: OTHER FREQUENCY : DAILY PRN;?
     Route: 048

REACTIONS (4)
  - Obstruction gastric [None]
  - Abdominal pain upper [None]
  - Intervertebral disc degeneration [None]
  - Back pain [None]

NARRATIVE: CASE EVENT DATE: 20220825
